FAERS Safety Report 11754144 (Version 1)
Quarter: 2015Q4

REPORT INFORMATION
  Report Type: Spontaneous
  Country: US (occurrence: None)
  Receive Date: 20151118
  Receipt Date: 20151118
  Transmission Date: 20160304
  Serious: Yes (Other)
  Sender: FDA-Public Use
  Company Number: None

PATIENT
  Age: 80 Year
  Sex: Female

DRUGS (1)
  1. H.P. ACTHAR [Suspect]
     Active Substance: CORTICOTROPIN
     Indication: PRODUCT USED FOR UNKNOWN INDICATION
     Dosage: 1ST INJ AT MD OFFICE / SHIPPING TO PT

REACTIONS (4)
  - Disease recurrence [None]
  - Pain [None]
  - Musculoskeletal stiffness [None]
  - Drug effect decreased [None]

NARRATIVE: CASE EVENT DATE: 20151116
